FAERS Safety Report 6136734-0 (Version None)
Quarter: 2009Q1

REPORT INFORMATION
  Report Type: 
  Country: None (occurrence: None)
  Receive Date: 20090330
  Receipt Date: 20090326
  Transmission Date: 20090719
  Serious: Yes (Death, Hospitalization)
  Sender: FDA-Public Use
  Company Number: PHEH2009US00933

PATIENT
  Age: 91 Year
  Sex: Male

DRUGS (1)
  1. EXJADE [Suspect]
     Indication: IRON OVERLOAD

REACTIONS (5)
  - DEATH [None]
  - FALL [None]
  - INTESTINAL OBSTRUCTION [None]
  - MOBILITY DECREASED [None]
  - PELVIC FRACTURE [None]
